FAERS Safety Report 6886838-X (Version None)
Quarter: 2010Q3

REPORT INFORMATION
  Report Type: 
  Country: None (occurrence: None)
  Receive Date: 20100730
  Receipt Date: 20100603
  Transmission Date: 20110219
  Serious: Yes (Other)
  Sender: FDA-Public Use
  Company Number: US-SHIRE-ALL1-2010-03201

PATIENT

DRUGS (3)
  1. ADDERALL XR 10 [Suspect]
     Indication: ATTENTION DEFICIT/HYPERACTIVITY DISORDER
     Dosage: 30 MG, 1X/DAY:QD
     Route: 048
  2. ADDERALL XR 10 [Suspect]
     Indication: SLEEP APNOEA SYNDROME
  3. TOPROL-XL [Concomitant]
     Indication: BLOOD PRESSURE INCREASED
     Dosage: UNK, UNKNOWN
     Route: 048
     Dates: start: 20000101

REACTIONS (5)
  - DIABETES MELLITUS [None]
  - HYPERTENSION [None]
  - MOOD SWINGS [None]
  - SOMNOLENCE [None]
  - URINE URIC ACID INCREASED [None]
